FAERS Safety Report 19933895 (Version 1)
Quarter: 2021Q4

REPORT INFORMATION
  Report Type: Spontaneous
  Country: US (occurrence: US)
  Receive Date: 20211008
  Receipt Date: 20211008
  Transmission Date: 20220303
  Serious: Yes (Hospitalization)
  Sender: FDA-Public Use
  Company Number: US-PARI RESPIRATORY EQUIPMENT, INC.-2021PAR00052

PATIENT
  Age: 10 Year
  Sex: Female
  Weight: 37.19 kg

DRUGS (11)
  1. KITABIS PAK [Suspect]
     Active Substance: TOBRAMYCIN
     Indication: Cystic fibrosis
     Dosage: 1 AMPULE (300 MG), VIA NEBULIZER 2X/DAY (28 DAYS ON, 28 DAYS OFF)
     Dates: start: 2021
  2. KITABIS PAK [Suspect]
     Active Substance: TOBRAMYCIN
     Indication: Lung disorder
  3. KITABIS PAK [Suspect]
     Active Substance: TOBRAMYCIN
     Indication: Illness
  4. VITAMIN D-400 [Concomitant]
  5. VITAMINS [Concomitant]
     Active Substance: VITAMINS
  6. SODIUM CHLORIDE [Concomitant]
     Active Substance: SODIUM CHLORIDE
  7. ALBUTEROL SULFATE [Concomitant]
     Active Substance: ALBUTEROL SULFATE
  8. CREON 12K-38K-60 [Concomitant]
  9. TRIKAFTA 100-50-75 [Concomitant]
  10. CAYSTON [Concomitant]
     Active Substance: AZTREONAM
  11. PULMOZYME [Concomitant]
     Active Substance: DORNASE ALFA

REACTIONS (1)
  - Pneumonia [Unknown]

NARRATIVE: CASE EVENT DATE: 20210901
